FAERS Safety Report 6657264-3 (Version None)
Quarter: 2010Q1

REPORT INFORMATION
  Report Type: 
  Country: None (occurrence: None)
  Receive Date: 20100325
  Receipt Date: 20100316
  Transmission Date: 20100710
  Serious: Yes (Hospitalization, Other)
  Sender: FDA-Public Use
  Company Number: 2009-193332-NL

PATIENT
  Age: 27 Year
  Sex: Female
  Weight: 61.2356 kg

DRUGS (2)
  1. NUVARING [Suspect]
     Indication: DRUG USE FOR UNKNOWN INDICATION
     Dates: start: 20080306, end: 20080322
  2. MULTIVITAMIN (CON.) [Concomitant]

REACTIONS (16)
  - ACUTE STRESS DISORDER [None]
  - ALCOHOL USE [None]
  - COUGH [None]
  - HAEMATOCRIT DECREASED [None]
  - HAEMOGLOBIN DECREASED [None]
  - HAEMOPTYSIS [None]
  - INJURY [None]
  - JOINT SPRAIN [None]
  - LACERATION [None]
  - NASOPHARYNGITIS [None]
  - NAUSEA [None]
  - NIGHT SWEATS [None]
  - PULMONARY EMBOLISM [None]
  - RENAL CYST [None]
  - SINUSITIS [None]
  - TOBACCO USER [None]
